FAERS Safety Report 9420189 (Version 1)
Quarter: 2013Q3

REPORT INFORMATION
  Report Type: Spontaneous
  Country: DE (occurrence: DE)
  Receive Date: 20130725
  Receipt Date: 20130725
  Transmission Date: 20140515
  Serious: Yes (Other)
  Sender: FDA-Public Use
  Company Number: DE-TEVA-419473GER

PATIENT
  Sex: 0

DRUGS (3)
  1. LOSARTAN-RATIOPHARM 50 MG FILMTABLETTEN [Suspect]
  2. METHOTREXATE 15 MG [Interacting]
  3. LEFLUNOMIDE [Interacting]

REACTIONS (3)
  - Enterocolitis haemorrhagic [Unknown]
  - Drug interaction [Unknown]
  - Neuropathy peripheral [Unknown]
